FAERS Safety Report 13615659 (Version 2)
Quarter: 2017Q2

REPORT INFORMATION
  Report Type: Spontaneous
  Country: US (occurrence: US)
  Receive Date: 20170606
  Receipt Date: 20170612
  Transmission Date: 20170830
  Serious: Yes (Hospitalization, Other)
  Sender: FDA-Public Use
  Company Number: US-DRREDDYS-USA/USA/17/0091104

PATIENT
  Age: 66 Year
  Sex: Female

DRUGS (1)
  1. LEVOFLOXACIN TABLETS [Suspect]
     Active Substance: LEVOFLOXACIN
     Indication: ESCHERICHIA INFECTION
     Route: 048

REACTIONS (7)
  - Thinking abnormal [Recovered/Resolved]
  - Delirium [Recovered/Resolved]
  - Mental status changes [Recovered/Resolved]
  - Delusion [Recovered/Resolved]
  - Hallucination, visual [Recovered/Resolved]
  - Disorientation [Recovered/Resolved]
  - Psychotic disorder [Recovered/Resolved]
